FAERS Safety Report 17102689 (Version 2)
Quarter: 2021Q1

REPORT INFORMATION
  Report Type: Spontaneous
  Country: NL (occurrence: NL)
  Receive Date: 20191202
  Receipt Date: 20210108
  Transmission Date: 20210419
  Serious: Yes (Other)
  Sender: FDA-Public Use
  Company Number: ALC2019NL001826

PATIENT

DRUGS (1)
  1. ATROPINE. [Suspect]
     Active Substance: ATROPINE
     Indication: MYOPIA
     Dosage: 1 DF, QD
     Route: 047
     Dates: start: 201903

REACTIONS (3)
  - Drug hypersensitivity [Recovering/Resolving]
  - Scleritis [Recovered/Resolved]
  - Conjunctivitis [Recovered/Resolved]

NARRATIVE: CASE EVENT DATE: 201903
